FAERS Safety Report 5107067-6 (Version None)
Quarter: 2006Q3

REPORT INFORMATION
  Report Type: 
  Country: None (occurrence: None)
  Receive Date: 20060913
  Receipt Date: 20060829
  Transmission Date: 20061208
  Serious: Yes (Hospitalization)
  Sender: FDA-Public Use
  Company Number: 2006001693

PATIENT
  Age: 54 Year
  Sex: Male

DRUGS (4)
  1. TARCEVA [Suspect]
     Indication: LUNG NEOPLASM MALIGNANT
     Dosage: 150 MG (QD), ORAL
     Route: 048
     Dates: start: 20060626, end: 20060712
  2. BETAPRED [Concomitant]
  3. MOLLIPECT (MOLLIPECT) [Concomitant]
  4. FUROSEMIDE [Concomitant]

REACTIONS (3)
  - HEMIPARESIS [None]
  - HYPERCALCAEMIA [None]
  - METASTASES TO CENTRAL NERVOUS SYSTEM [None]
